FAERS Safety Report 6504158-X (Version None)
Quarter: 2009Q4

REPORT INFORMATION
  Report Type: 
  Country: None (occurrence: None)
  Receive Date: 20091217
  Receipt Date: 20091209
  Transmission Date: 20100525
  Serious: Yes (Life-Threatening, Hospitalization)
  Sender: FDA-Public Use
  Company Number: DE-BAXTER-2009BH016769

PATIENT
  Age: 60 Year
  Sex: Male

DRUGS (20)
  1. FLUCONAZOLE [Suspect]
     Indication: PNEUMONIA
     Route: 065
     Dates: start: 20090611, end: 20090622
  2. AMOCLAV [Suspect]
     Indication: ERYSIPELAS
     Route: 065
     Dates: start: 20090728, end: 20090729
  3. IMIPENEM [Suspect]
     Indication: PNEUMONIA
     Route: 065
     Dates: start: 20090611, end: 20090622
  4. BENZYLPENICILLIN [Suspect]
     Indication: ERYSIPELAS
     Route: 065
     Dates: start: 20090429, end: 20090501
  5. NYSTATIN [Concomitant]
     Indication: DRUG USE FOR UNKNOWN INDICATION
     Route: 065
     Dates: start: 20090701
  6. MARCUMAR [Concomitant]
     Indication: DRUG USE FOR UNKNOWN INDICATION
     Route: 065
     Dates: start: 20090701
  7. METOPROLOL TARTRATE [Concomitant]
     Indication: DRUG USE FOR UNKNOWN INDICATION
     Route: 065
     Dates: start: 20090701
  8. FUROSEMIDE [Concomitant]
     Indication: DRUG USE FOR UNKNOWN INDICATION
     Route: 065
     Dates: start: 20090701
  9. NAPROXEN [Concomitant]
     Indication: DRUG USE FOR UNKNOWN INDICATION
     Route: 065
     Dates: start: 20090401
  10. ARCOXIA [Concomitant]
     Indication: DRUG USE FOR UNKNOWN INDICATION
     Route: 065
     Dates: start: 20090401
  11. RAMIPRIL [Concomitant]
     Indication: DRUG USE FOR UNKNOWN INDICATION
     Route: 065
     Dates: start: 20090401
  12. METOPROLOL TARTRATE [Concomitant]
     Route: 065
     Dates: start: 20090401
  13. FUROSEMIDE [Concomitant]
     Route: 065
     Dates: start: 20090401
  14. DIGITOXIN INJ [Concomitant]
     Indication: DRUG USE FOR UNKNOWN INDICATION
     Route: 065
     Dates: start: 20090401
  15. SIMVASTATIN [Concomitant]
     Indication: DRUG USE FOR UNKNOWN INDICATION
     Route: 065
     Dates: start: 20090401
  16. PANTOZOL [Concomitant]
     Indication: DRUG USE FOR UNKNOWN INDICATION
     Route: 065
     Dates: start: 20090401
  17. CEFAZOLIN [Concomitant]
     Indication: DRUG USE FOR UNKNOWN INDICATION
     Route: 065
     Dates: start: 20090501, end: 20090505
  18. PIPRIL [Concomitant]
     Indication: DRUG USE FOR UNKNOWN INDICATION
     Route: 065
     Dates: start: 20090501, end: 20090505
  19. COMBACTAM [Concomitant]
     Indication: DRUG USE FOR UNKNOWN INDICATION
     Route: 065
     Dates: start: 20090501, end: 20090505
  20. IMIPENEM [Concomitant]
     Indication: DRUG USE FOR UNKNOWN INDICATION
     Route: 065
     Dates: start: 20090501, end: 20090506

REACTIONS (2)
  - ERYSIPELAS [None]
  - PANCYTOPENIA [None]
